FAERS Safety Report 12675882 (Version 1)
Quarter: 2016Q3

REPORT INFORMATION
  Report Type: Spontaneous
  Country: US (occurrence: None)
  Receive Date: 20160822
  Receipt Date: 20160822
  Transmission Date: 20161109
  Serious: No
  Sender: FDA-Public Use
  Company Number: None

PATIENT
  Age: 29 Year
  Sex: Female
  Weight: 53.07 kg

DRUGS (4)
  1. CIPROFLOXACIN. [Suspect]
     Active Substance: CIPROFLOXACIN
     Indication: DIARRHOEA
     Route: 048
     Dates: start: 20160817, end: 20160819
  2. DROSPIRENONE [Concomitant]
     Active Substance: DROSPIRENONE
  3. ESTRADIOL. [Concomitant]
     Active Substance: ESTRADIOL
  4. ETHINYL [Concomitant]

REACTIONS (4)
  - Eye disorder [None]
  - Muscle spasms [None]
  - Myalgia [None]
  - Eye pain [None]

NARRATIVE: CASE EVENT DATE: 20160819
